FAERS Safety Report 4816237-3 (Version None)
Quarter: 2005Q4

REPORT INFORMATION
  Report Type: 
  Country: None (occurrence: None)
  Receive Date: 20051026
  Receipt Date: 20051017
  Transmission Date: 20060501
  Serious: Yes (Hospitalization, Disabling, Other)
  Sender: FDA-Public Use
  Company Number: 2005-10-0866

PATIENT
  Age: 53 Year
  Sex: Female

DRUGS (7)
  1. CELESTENE (BETAMETHASONE SODIUM PHOSPHATE) INJECTABLE SOLUTION ^LIKE C [Suspect]
     Indication: BACK PAIN
     Dosage: 4 MG QD INTRAMUSCULAR
     Dates: start: 20030101
  2. VISCERALGINE FORTE A LA NORAMIDOPYRINE INJECTABLE [Suspect]
     Indication: BACK PAIN
     Dosage: INTRAMUSCULAR
     Route: 030
     Dates: start: 20030101
  3. XYLOCAINE [Suspect]
     Indication: BACK PAIN
     Dosage: INTRAMUSCULAR
     Dates: start: 20030101
  4. ANALGESIC BALM [Suspect]
     Indication: INJECTION SITE IRRITATION
     Dates: start: 20030101
  5. ANALGESIC BALM [Suspect]
     Indication: PAIN IN EXTREMITY
     Dates: start: 20030101
  6. CORTISONE ACETATE TAB [Suspect]
     Indication: HYPERSENSITIVITY
     Dates: start: 20030101
  7. BIAFINE [Suspect]
     Indication: HYPERSENSITIVITY
     Dates: start: 20030101

REACTIONS (13)
  - ABDOMINAL DISCOMFORT [None]
  - DIFFICULTY IN WALKING [None]
  - DRUG INEFFECTIVE [None]
  - FEMORAL NERVE LESION [None]
  - HAEMORRHAGE [None]
  - INFLAMMATION [None]
  - INJECTION SITE IRRITATION [None]
  - PAIN IN EXTREMITY [None]
  - PERINEAL PAIN [None]
  - SCIATIC NERVE INJURY [None]
  - THERAPY NON-RESPONDER [None]
  - UTERINE HAEMORRHAGE [None]
  - UTERINE POLYP [None]
